FAERS Safety Report 6207039-4 (Version None)
Quarter: 2009Q2

REPORT INFORMATION
  Report Type: 
  Country: None (occurrence: None)
  Receive Date: 20090528
  Receipt Date: 20090519
  Transmission Date: 20091009
  Serious: Yes (Other)
  Sender: FDA-Public Use
  Company Number: JP-BAYER-200911645BYL

PATIENT
  Age: 56 Year
  Sex: Male
  Weight: 63 kg

DRUGS (10)
  1. FLUDARA [Suspect]
     Indication: APLASTIC ANAEMIA
     Dosage: AS USED: 25 MG/M2  UNIT DOSE: 50 MG
     Route: 042
     Dates: start: 20080905, end: 20080909
  2. ALKERAN [Concomitant]
     Indication: APLASTIC ANAEMIA
     Dosage: AS USED: 40 MG/M2  UNIT DOSE: 50 MG
     Route: 042
     Dates: start: 20080908, end: 20080909
  3. METHOTREXATE [Concomitant]
     Dosage: AS USED: 8.5 MG
     Route: 041
     Dates: start: 20080911, end: 20080911
  4. METHOTREXATE [Concomitant]
     Dosage: AS USED: 8.5 MG
     Route: 041
     Dates: start: 20080917, end: 20080917
  5. METHOTREXATE [Concomitant]
     Dosage: AS USED: 8.5 MG
     Route: 041
     Dates: start: 20080922, end: 20080922
  6. METHOTREXATE [Concomitant]
     Dosage: AS USED: 8.5 MG
     Route: 041
     Dates: start: 20080914, end: 20080914
  7. PROGRAF [Concomitant]
     Route: 041
     Dates: start: 20080910, end: 20081022
  8. PROGRAF [Concomitant]
     Dosage: TOTAL DAILY DOSE: 0.2 MG  UNIT DOSE: 0.2 MG
     Route: 048
     Dates: start: 20081113, end: 20081205
  9. CONCENTRATED RED CELLS [Concomitant]
     Indication: PACKED RED BLOOD CELL TRANSFUSION
     Route: 042
     Dates: start: 20080627, end: 20080929
  10. PLATELETS [Concomitant]
     Indication: PLATELET TRANSFUSION
     Route: 042
     Dates: start: 20080627, end: 20080929

REACTIONS (2)
  - ACUTE GRAFT VERSUS HOST DISEASE IN INTESTINE [None]
  - STOMATITIS [None]
